FAERS Safety Report 8432840-6 (Version None)
Quarter: 2012Q2

REPORT INFORMATION
  Report Type: 
  Country: None (occurrence: None)
  Receive Date: 20120607
  Receipt Date: 20120504
  Transmission Date: 20120825
  Serious: Yes (Other)
  Sender: FDA-Public Use
  Company Number: 001227945A

PATIENT
  Age: 37 Year
  Sex: Female

DRUGS (2)
  1. MEDICATION FOR DEPRESSION AND STOMACH PROBLEMS [Concomitant]
  2. PROACTIV 30 DAY [Suspect]
     Indication: ACNE
     Dosage: ONCE DERMAL
     Dates: start: 20120503

REACTIONS (3)
  - RASH GENERALISED [None]
  - URTICARIA [None]
  - DYSPNOEA [None]
